FAERS Safety Report 6367754-9 (Version None)
Quarter: 2009Q3

REPORT INFORMATION
  Report Type: 
  Country: None (occurrence: None)
  Receive Date: 20090921
  Receipt Date: 20090909
  Transmission Date: 20100115
  Serious: Yes (Hospitalization, Other)
  Sender: FDA-Public Use
  Company Number: US-ELI_LILLY_AND_COMPANY-US200908002173

PATIENT
  Age: 51 Year
  Sex: Female
  Weight: 80.272 kg

DRUGS (20)
  1. CYMBALTA [Suspect]
     Indication: ANXIETY DISORDER
     Dosage: 60 MG, UNK
     Dates: end: 20090722
  2. SINGULAIR [Concomitant]
  3. SYNTHROID [Concomitant]
  4. PREVACID [Concomitant]
  5. ALLOPURINOL [Concomitant]
  6. LISINOPRIL [Concomitant]
  7. TACLONEX [Concomitant]
  8. DESONIDE [Concomitant]
  9. TRAZODONE [Concomitant]
  10. VITAMIN D [Concomitant]
  11. REQUIP [Concomitant]
  12. ESTRACE [Concomitant]
     Route: 067
  13. NASONEX [Concomitant]
  14. ENABLEX                            /01760401/ [Concomitant]
  15. FLEXERIL [Concomitant]
  16. VALTREX [Concomitant]
  17. VICOPROFEN [Concomitant]
  18. VIASPAN [Concomitant]
  19. MESTINON [Concomitant]
  20. DOSTINEX [Concomitant]

REACTIONS (5)
  - ALANINE AMINOTRANSFERASE INCREASED [None]
  - ASPARTATE AMINOTRANSFERASE INCREASED [None]
  - BLOOD ALKALINE PHOSPHATASE INCREASED [None]
  - CHEST PAIN [None]
  - HEPATITIS [None]
